FAERS Safety Report 5956318-4 (Version None)
Quarter: 2008Q4

REPORT INFORMATION
  Report Type: 
  Country: None (occurrence: None)
  Receive Date: 20081118
  Receipt Date: 20081107
  Transmission Date: 20090506
  Serious: Yes (Other)
  Sender: FDA-Public Use
  Company Number: PHHY2008JP25460

PATIENT
  Age: 60 Year
  Sex: Female

DRUGS (2)
  1. LOCHOL [Suspect]
     Indication: HYPERCHOLESTEROLAEMIA
     Dosage: 10 MG, QD
     Route: 048
     Dates: start: 20080902, end: 20080916
  2. LOCHOL [Suspect]
     Dosage: 30 MG/DAY
     Route: 048
     Dates: start: 20080916, end: 20081014

REACTIONS (2)
  - BLOOD CREATINE PHOSPHOKINASE INCREASED [None]
  - PAIN IN EXTREMITY [None]
